FAERS Safety Report 10032855 (Version 4)
Quarter: 2014Q2

REPORT INFORMATION
  Report Type: Spontaneous
  Country: FR (occurrence: FR)
  Receive Date: 20140324
  Receipt Date: 20140418
  Transmission Date: 20141212
  Serious: Yes (Life-Threatening, Other)
  Sender: FDA-Public Use
  Company Number: FR-PFIZER INC-2014078614

PATIENT
  Age: 5 Day
  Sex: Female

DRUGS (3)
  1. PRODILANTIN [Suspect]
     Dosage: 4 ML, UNK
     Dates: start: 20140223, end: 20140223
  2. GARDENAL [Concomitant]
     Dosage: UNK
  3. TEGRETOL [Concomitant]
     Dosage: UNK

REACTIONS (4)
  - Drug prescribing error [Recovered/Resolved]
  - Accidental overdose [Unknown]
  - Coma [Recovered/Resolved]
  - Drug level increased [Unknown]
